FAERS Safety Report 9716920 (Version 2)
Quarter: 2013Q4

REPORT INFORMATION
  Report Type: Spontaneous
  Country: US (occurrence: US)
  Receive Date: 20131127
  Receipt Date: 20131127
  Transmission Date: 20140711
  Serious: Yes (Hospitalization)
  Sender: FDA-Public Use
  Company Number: US-GILEAD-2009-0019905

PATIENT
  Age: 58 Year
  Sex: Female
  Weight: 52.16 kg

DRUGS (10)
  1. LETAIRIS [Suspect]
     Indication: PULMONARY HYPERTENSION
     Route: 048
     Dates: start: 20081013
  2. NORVASC [Concomitant]
  3. ASA [Concomitant]
  4. LISINOPRIL [Concomitant]
  5. SINGULAIR [Concomitant]
  6. ADVAIR DISKU MIS 100/50 [Concomitant]
  7. CORTEF [Concomitant]
  8. PLAQUENIL [Concomitant]
  9. MINOCIN [Concomitant]
  10. BONIVA [Concomitant]

REACTIONS (1)
  - Dyspnoea [Not Recovered/Not Resolved]
